FAERS Safety Report 8335173-1 (Version None)
Quarter: 2012Q2

REPORT INFORMATION
  Report Type: 
  Country: None (occurrence: None)
  Receive Date: 20120503
  Receipt Date: 20120502
  Transmission Date: 20120825
  Serious: Yes (Other)
  Sender: FDA-Public Use
  Company Number: US-PFIZER INC-2012108645

PATIENT
  Sex: Female
  Weight: 63.492 kg

DRUGS (7)
  1. CHANTIX [Suspect]
     Dosage: UNK
  2. OXYCODONE [Concomitant]
     Indication: PAIN
     Dosage: 15 MG, DAILY
  3. CYMBALTA [Concomitant]
     Indication: TRIGEMINAL NEURALGIA
     Dosage: 120 MG,DAILY
  4. CLONAZEPAM [Concomitant]
     Indication: ANXIETY
     Dosage: 0.5 MG, 3X/DAY
  5. METFORMIN [Concomitant]
     Indication: DIABETES MELLITUS
     Dosage: 1000 UNITS,DAILY AT NIGHT
  6. CHANTIX [Suspect]
     Indication: SMOKING CESSATION THERAPY
     Dosage: 0.5 MG, DAILY
  7. SIMVASTATIN [Concomitant]
     Indication: BLOOD CHOLESTEROL INCREASED
     Dosage: 20 MG,DAILY

REACTIONS (2)
  - BRAIN OPERATION [None]
  - NIGHTMARE [None]
